FAERS Safety Report 10584452 (Version 1)
Quarter: 2014Q4

REPORT INFORMATION
  Report Type: Spontaneous
  Country: US (occurrence: US)
  Receive Date: 20141114
  Receipt Date: 20141114
  Transmission Date: 20150529
  Serious: Yes (Other)
  Sender: FDA-Public Use
  Company Number: US-ELI_LILLY_AND_COMPANY-US201411000629

PATIENT
  Sex: Male

DRUGS (1)
  1. CYMBALTA [Suspect]
     Active Substance: DULOXETINE HYDROCHLORIDE
     Indication: PRODUCT USED FOR UNKNOWN INDICATION
     Dosage: UNK, UNKNOWN
     Route: 065
     Dates: start: 201405

REACTIONS (5)
  - Diabetic neuropathy [Unknown]
  - Cognitive disorder [Unknown]
  - Neuropathy peripheral [Unknown]
  - Hearing impaired [Unknown]
  - Confusional state [Unknown]

NARRATIVE: CASE EVENT DATE: 201405
